FAERS Safety Report 12740068 (Version 2)
Quarter: 2016Q3

REPORT INFORMATION
  Report Type: Report from Study
  Country: FI (occurrence: FI)
  Receive Date: 20160913
  Receipt Date: 20160928
  Transmission Date: 20161109
  Serious: Yes (Hospitalization)
  Sender: FDA-Public Use
  Company Number: FI-ABBVIE-16P-055-1723483-00

PATIENT
  Age: 70 Year
  Sex: Female

DRUGS (5)
  1. SINEMET [Concomitant]
     Active Substance: CARBIDOPA\LEVODOPA
     Indication: PRODUCT USED FOR UNKNOWN INDICATION
  2. DUODOPA [Suspect]
     Active Substance: CARBIDOPA\LEVODOPA
     Dosage: MD: 8.0 ML, CD: 2.2 ML, EXTRA DOSE 2.3 ML
     Route: 050
     Dates: start: 201609, end: 20160909
  3. DUODOPA [Suspect]
     Active Substance: CARBIDOPA\LEVODOPA
     Dosage: MD: 8.0 ML, CD: 2.2 ML, EXTRA DOSE 2.3 ML
     Route: 050
     Dates: start: 20160909
  4. TENOX [Concomitant]
     Active Substance: TEMAZEPAM
     Indication: PRODUCT USED FOR UNKNOWN INDICATION
  5. DUODOPA [Suspect]
     Active Substance: CARBIDOPA\LEVODOPA
     Indication: PARKINSON^S DISEASE
     Dosage: MD: 8.0 ML, CD: 2.3 ML, EXTRA DOSE 2.3 ML
     Route: 050
     Dates: start: 20160830, end: 201609

REACTIONS (7)
  - Musculoskeletal stiffness [Unknown]
  - Restlessness [Recovered/Resolved]
  - Obsessive-compulsive disorder [Unknown]
  - Drug ineffective [Unknown]
  - Musculoskeletal stiffness [Recovered/Resolved]
  - Device alarm issue [Recovered/Resolved]
  - Incorrect dose administered [Unknown]

NARRATIVE: CASE EVENT DATE: 20160905
